FAERS Safety Report 7909378-5 (Version None)
Quarter: 2011Q4

REPORT INFORMATION
  Report Type: 
  Country: None (occurrence: None)
  Receive Date: 20111111
  Receipt Date: 20111101
  Transmission Date: 20120403
  Serious: Yes (Hospitalization)
  Sender: FDA-Public Use
  Company Number: US-BAYER-2011-106667

PATIENT
  Age: 77 Year
  Sex: Female
  Weight: 73.923 kg

DRUGS (9)
  1. ULTRAM [Concomitant]
     Indication: ARTHRALGIA
     Dosage: 50 MG, PRN
     Route: 048
  2. ASPIRIN [Suspect]
     Indication: PRODUCT USED FOR UNKNOWN INDICATION
  3. MICARDIS [Concomitant]
     Indication: BLOOD PRESSURE ABNORMAL
     Dosage: DAILY DOSE 80 MG
     Route: 048
  4. CELEBREX [Suspect]
     Indication: ARTHRALGIA
     Route: 048
  5. PLAVIX [Suspect]
     Indication: ATRIAL FIBRILLATION
     Dosage: UNK
     Dates: start: 20081201
  6. HYDROCHLOROTHIAZIDE [Concomitant]
     Indication: PRODUCT USED FOR UNKNOWN INDICATION
     Dosage: 12.5 MG, UNK
  7. VYTORIN [Concomitant]
     Indication: PRODUCT USED FOR UNKNOWN INDICATION
     Dosage: 10/10MG DAILY
     Route: 048
  8. PLAVIX [Suspect]
     Indication: VASCULAR GRAFT
  9. METOPROLOL [Concomitant]
     Indication: BLOOD PRESSURE ABNORMAL
     Dosage: 50 MG, UNK

REACTIONS (1)
  - GASTRIC HAEMORRHAGE [None]
